FAERS Safety Report 6832639-8 (Version None)
Quarter: 2010Q3

REPORT INFORMATION
  Report Type: 
  Country: None (occurrence: None)
  Receive Date: 20100712
  Receipt Date: 20070317
  Transmission Date: 20110219
  Serious: No
  Sender: FDA-Public Use
  Company Number: US-PFIZER INC-2007021123

PATIENT
  Sex: Female
  Weight: 79.83 kg

DRUGS (5)
  1. CHANTIX [Suspect]
     Indication: SMOKING CESSATION THERAPY
     Dates: start: 20070201
  2. LIPITOR [Concomitant]
     Indication: BLOOD CHOLESTEROL INCREASED
     Dates: start: 20050101
  3. METFORMIN [Concomitant]
     Indication: TYPE 2 DIABETES MELLITUS
     Dates: start: 20050101
  4. GLUCOTROL XL [Concomitant]
     Indication: TYPE 2 DIABETES MELLITUS
     Dates: start: 20050101
  5. VASOTEC [Concomitant]
     Indication: HYPERTENSION
     Dates: start: 20050101

REACTIONS (2)
  - DRUG EFFECT INCREASED [None]
  - INSOMNIA [None]
